FAERS Safety Report 11404800 (Version 3)
Quarter: 2016Q2

REPORT INFORMATION
  Report Type: Spontaneous
  Country: FR (occurrence: FR)
  Receive Date: 20150821
  Receipt Date: 20160617
  Transmission Date: 20160815
  Serious: Yes (Death, Life-Threatening, Hospitalization, Other)
  Sender: FDA-Public Use
  Company Number: FR-009507513-1508FRA007912

PATIENT
  Sex: Female
  Weight: 91 kg

DRUGS (1)
  1. NUVARING [Suspect]
     Active Substance: ETHINYL ESTRADIOL\ETONOGESTREL
     Indication: CONTRACEPTION
     Dosage: UNK
     Route: 067
     Dates: start: 20120612

REACTIONS (13)
  - Peripheral swelling [Unknown]
  - Diastasis recti abdominis [Unknown]
  - Coma [Unknown]
  - Fatigue [Unknown]
  - Malaise [Unknown]
  - Pulmonary embolism [Fatal]
  - Cardiac arrest [Unknown]
  - Dyspnoea [Unknown]
  - Pain in extremity [Unknown]
  - Phlebitis [Unknown]
  - Ventricular dysfunction [Not Recovered/Not Resolved]
  - Multiple organ dysfunction syndrome [Fatal]
  - Nosocomial infection [Unknown]

NARRATIVE: CASE EVENT DATE: 2013
